FAERS Safety Report 18691230 (Version 1)
Quarter: 2021Q1

REPORT INFORMATION
  Report Type: Spontaneous
  Country: FR (occurrence: FR)
  Receive Date: 20210101
  Receipt Date: 20210101
  Transmission Date: 20210419
  Serious: Yes (Hospitalization)
  Sender: FDA-Public Use
  Company Number: FR-ACCORD-213185

PATIENT
  Age: 76 Year
  Sex: Male
  Weight: 86 kg

DRUGS (16)
  1. DOXORUBICIN [Suspect]
     Active Substance: DOXORUBICIN
     Indication: B-CELL LYMPHOMA
     Dosage: 81 MG D1 EACH TREATMENT
     Route: 042
     Dates: start: 20201030, end: 20201030
  2. ZYMAD [Concomitant]
     Active Substance: CHOLECALCIFEROL
     Indication: HYPOVITAMINOSIS
     Dosage: STRENGTH: 80,000 IU, ORAL SOLUTION IN AMPOULE
     Route: 048
     Dates: start: 20201002
  3. OMEXEL L.P. [Concomitant]
     Active Substance: TAMSULOSIN HYDROCHLORIDE
     Indication: BENIGN PROSTATIC HYPERPLASIA
     Dosage: STRENGTH: 0.4 MG, PROLONGED?RELEASE FILM?COATED TABLET
     Route: 048
     Dates: start: 20201002
  4. ENDOXAN [Suspect]
     Active Substance: CYCLOPHOSPHAMIDE
     Indication: B-CELL LYMPHOMA
     Dosage: 1220 MG D1 EACH TREATMENT
     Route: 042
     Dates: start: 20201006, end: 20201030
  5. PANTOPRAZOLE [Concomitant]
     Active Substance: PANTOPRAZOLE
     Indication: PEPTIC ULCER
     Route: 048
     Dates: start: 20201002
  6. PARACETAMOL B BRAUN [Concomitant]
     Active Substance: ACETAMINOPHEN
     Indication: PAIN
     Route: 042
     Dates: start: 20201006, end: 20201030
  7. METHYLPREDNISOLONE (HEMISUCCINATE DE) [Concomitant]
     Active Substance: METHYLPREDNISOLONE HEMISUCCINATE
     Indication: ALLERGY PROPHYLAXIS
     Route: 042
     Dates: start: 20201006, end: 20201030
  8. POLARAMINE [Concomitant]
     Active Substance: DEXCHLORPHENIRAMINE MALEATE
     Indication: ALLERGY PROPHYLAXIS
     Route: 042
     Dates: start: 20201006, end: 20201030
  9. VINCRISTINE [Suspect]
     Active Substance: VINCRISTINE
     Indication: B-CELL LYMPHOMA
     Dosage: 2 MG D1 EACH TREATMENT
     Route: 042
     Dates: start: 20201006, end: 20201030
  10. MABTHERA [Suspect]
     Active Substance: RITUXIMAB
     Indication: B-CELL LYMPHOMA
     Dosage: 610 MG D1 EACH TREATMENT
     Route: 042
     Dates: start: 20201006, end: 20201030
  11. ETOPOSIDE. [Suspect]
     Active Substance: ETOPOSIDE
     Indication: B-CELL LYMPHOMA
     Dosage: 81 MG D1 (D2D3 CANCELED)
     Route: 042
     Dates: start: 20201006, end: 20201006
  12. PREDNISOLONE. [Concomitant]
     Active Substance: PREDNISOLONE
     Indication: PAIN
     Dosage: IN THE MORNING
     Route: 048
     Dates: start: 20200929
  13. SPECIAFOLDINE [Concomitant]
     Active Substance: FOLIC ACID
     Indication: ANAEMIA PROPHYLAXIS
     Route: 048
     Dates: start: 20201002
  14. VALACICLOVIR [Concomitant]
     Active Substance: VALACYCLOVIR HYDROCHLORIDE
     Indication: ANTIVIRAL TREATMENT
     Dosage: UNSPECIFIED
     Route: 048
     Dates: start: 20201006
  15. ZARZIO [Suspect]
     Active Substance: FILGRASTIM
     Indication: NEUTROPENIA
     Dosage: 1 SER / DAY
     Route: 058
     Dates: start: 20201011, end: 20201012
  16. ZOPHREN [Concomitant]
     Active Substance: ONDANSETRON
     Indication: CHEMOTHERAPY SIDE EFFECT PROPHYLAXIS
     Route: 042
     Dates: start: 20201006, end: 20201030

REACTIONS (1)
  - Interstitial lung disease [Not Recovered/Not Resolved]

NARRATIVE: CASE EVENT DATE: 20201121
